FAERS Safety Report 11615902 (Version 1)
Quarter: 2015Q4

REPORT INFORMATION
  Report Type: Spontaneous
  Country: US (occurrence: US)
  Receive Date: 20151009
  Receipt Date: 20151009
  Transmission Date: 20160304
  Serious: No
  Sender: FDA-Public Use
  Company Number: US-CELGENEUS-USA-2015094955

PATIENT
  Sex: Male
  Weight: 104.42 kg

DRUGS (3)
  1. REVLIMID [Suspect]
     Active Substance: LENALIDOMIDE
     Dosage: 15MG FOR 5 DAYS, 20MG FOR 2 DAYS
     Route: 048
     Dates: start: 201409
  2. REVLIMID [Suspect]
     Active Substance: LENALIDOMIDE
     Indication: PLASMA CELL MYELOMA
     Route: 048
     Dates: start: 200807
  3. REVLIMID [Suspect]
     Active Substance: LENALIDOMIDE
     Dosage: 15MG-25MG
     Route: 048
     Dates: start: 200907

REACTIONS (3)
  - Emotional disorder [Not Recovered/Not Resolved]
  - Pain [Not Recovered/Not Resolved]
  - Diarrhoea [Not Recovered/Not Resolved]

NARRATIVE: CASE EVENT DATE: 2012
